FAERS Safety Report 6634814-4 (Version None)
Quarter: 2010Q1

REPORT INFORMATION
  Report Type: 
  Country: None (occurrence: None)
  Receive Date: 20100315
  Receipt Date: 20100303
  Transmission Date: 20100710
  Serious: Yes (Other)
  Sender: FDA-Public Use
  Company Number: SE-PFIZER INC-2010027405

PATIENT
  Sex: Female

DRUGS (2)
  1. PREDNISOLON [Suspect]
     Indication: ARTHRITIS
     Dosage: 30 MG, DAILY
     Dates: start: 20100115
  2. LEVOTHYROXINE SODIUM [Concomitant]
     Dosage: UNK

REACTIONS (2)
  - OEDEMA [None]
  - WEIGHT INCREASED [None]
